FAERS Safety Report 10240148 (Version 2)
Quarter: 2014Q2

REPORT INFORMATION
  Report Type: Spontaneous
  Country: BR (occurrence: BR)
  Receive Date: 20140617
  Receipt Date: 20140620
  Transmission Date: 20141212
  Serious: Yes (Other)
  Sender: FDA-Public Use
  Company Number: BR-AMGEN INC.-BRASP2014044692

PATIENT
  Age: 64 Year
  Sex: Female
  Weight: 70 kg

DRUGS (4)
  1. ENBREL [Suspect]
     Indication: RHEUMATOID ARTHRITIS
     Dosage: 25 MG, 2 APPLICATIONS ON THE SAME DAY, UNSPECIFIED FREQUENCY
     Route: 058
     Dates: start: 20121012, end: 2013
  2. ENBREL [Suspect]
     Dosage: 25 MG, 2 APPLICATIONS ON THE SAME DAY, UNSPECIFIED FREQUENCY
     Route: 058
     Dates: start: 201308, end: 201403
  3. ENBREL [Suspect]
     Dosage: 50 MG, ONCE WEEKLY
     Route: 065
     Dates: start: 2013, end: 201308
  4. ENALAPRIL [Concomitant]
     Dosage: UNK
     Dates: start: 2008

REACTIONS (2)
  - Femur fracture [Unknown]
  - Drug ineffective [Unknown]
